FAERS Safety Report 18173110 (Version 1)
Quarter: 2020Q3

REPORT INFORMATION
  Report Type: Spontaneous
  Country: US (occurrence: US)
  Receive Date: 20200819
  Receipt Date: 20200819
  Transmission Date: 20201103
  Serious: Yes (Other)
  Sender: FDA-Public Use
  Company Number: US-GILEAD-2020-0489848

PATIENT
  Sex: Female

DRUGS (1)
  1. VIREAD [Suspect]
     Active Substance: TENOFOVIR DISOPROXIL FUMARATE
     Indication: PRODUCT USED FOR UNKNOWN INDICATION
     Dosage: UNK
     Route: 065

REACTIONS (8)
  - Pain [Unknown]
  - Chronic kidney disease [Unknown]
  - Emotional distress [Unknown]
  - Economic problem [Unknown]
  - Renal failure [Unknown]
  - Anxiety [Unknown]
  - Proteinuria [Unknown]
  - Anhedonia [Unknown]
